FAERS Safety Report 23148539 (Version 1)
Quarter: 2023Q4

REPORT INFORMATION
  Report Type: Spontaneous
  Country: CA (occurrence: CA)
  Receive Date: 20231106
  Receipt Date: 20231106
  Transmission Date: 20240109
  Serious: Yes (Life-Threatening, Hospitalization, Other)
  Sender: FDA-Public Use
  Company Number: CA-TEVA-2023-CA-2941395

PATIENT
  Age: 19 Month
  Sex: Female

DRUGS (1)
  1. CISPLATIN [Suspect]
     Active Substance: CISPLATIN
     Indication: Hepatic neoplasm
     Dosage: FREQUENCY TIME : CYCLICAL
     Route: 065

REACTIONS (3)
  - Haemoperitoneum [Recovered/Resolved]
  - Tumour rupture [Recovered/Resolved]
  - Off label use [Recovered/Resolved]
